FAERS Safety Report 21109377 (Version 1)
Quarter: 2022Q3

REPORT INFORMATION
  Report Type: Other
  Country: MY (occurrence: MY)
  Receive Date: 20220721
  Receipt Date: 20220721
  Transmission Date: 20221027
  Serious: Yes (Hospitalization)
  Sender: FDA-Public Use
  Company Number: MY-DEXPHARM-20221115

PATIENT
  Age: 43 Year
  Sex: Female

DRUGS (2)
  1. HYDROCORTISONE [Suspect]
     Active Substance: HYDROCORTISONE
     Indication: COVID-19
     Dosage: IV HYDROCORTISONE 100MG THREE TIME A DAY
     Route: 041
  2. DEXAMETHASONE [Suspect]
     Active Substance: DEXAMETHASONE
     Indication: COVID-19
     Dosage: IV DEXAMETHASONE 6MG ONCE DAILY
     Route: 041

REACTIONS (2)
  - Diabetes insipidus [Recovered/Resolved]
  - Product use in unapproved indication [Recovered/Resolved]
